FAERS Safety Report 6720580-0 (Version None)
Quarter: 2010Q2

REPORT INFORMATION
  Report Type: 
  Country: None (occurrence: None)
  Receive Date: 20100510
  Receipt Date: 20100426
  Transmission Date: 20101027
  Serious: Yes (Hospitalization)
  Sender: FDA-Public Use
  Company Number: 2010SP001244

PATIENT
  Sex: Male

DRUGS (1)
  1. OMNARIS [Suspect]
     Dosage: NASAL
     Route: 045
     Dates: start: 20100101

REACTIONS (1)
  - CONVULSION [None]
